FAERS Safety Report 5758454-4 (Version None)
Quarter: 2008Q2

REPORT INFORMATION
  Report Type: 
  Country: None (occurrence: None)
  Receive Date: 20080604
  Receipt Date: 20080522
  Transmission Date: 20081010
  Serious: Yes (Hospitalization)
  Sender: FDA-Public Use
  Company Number: APP200800417

PATIENT
  Age: 44 Year
  Sex: Male
  Weight: 91 kg

DRUGS (5)
  1. HEPARIN SODIUM INJECTION [Suspect]
     Indication: HAEMODIALYSIS
     Dosage: 4600 USP UNITS, ONCE, INTRAVENOUS
     Route: 042
     Dates: start: 20080513, end: 20080513
  2. HEPARIN SODIUM INJECTION [Suspect]
     Indication: HAEMODIALYSIS
     Dosage: 4600 USP UNITS, ONCE, INTRAVENOUS
     Route: 042
     Dates: start: 20080517, end: 20080517
  3. GAMBRO POLYFLUX 21R DIALYZER [Suspect]
     Indication: HAEMODIALYSIS
     Dates: start: 20080513, end: 20080513
  4. BAXTER CA210HP DIALYZER [Suspect]
     Indication: HAEMODIALYSIS
     Dates: start: 20080517, end: 20080517
  5. COMBIVENT (BREVA) [Concomitant]

REACTIONS (10)
  - ANAPHYLACTIC REACTION [None]
  - CHEST PAIN [None]
  - DRUG HYPERSENSITIVITY [None]
  - DYSPNOEA [None]
  - HYPERSENSITIVITY [None]
  - HYPOTENSION [None]
  - PRURITUS [None]
  - RASH [None]
  - URTICARIA [None]
  - WHEEZING [None]
